FAERS Safety Report 9997554 (Version 2)
Quarter: 2014Q1

REPORT INFORMATION
  Report Type: Spontaneous
  Country: JP (occurrence: JP)
  Receive Date: 20140311
  Receipt Date: 20140320
  Transmission Date: 20141002
  Serious: Yes (Other)
  Sender: FDA-Public Use
  Company Number: JP-009507513-1403JPN002258

PATIENT
  Age: 60 Year
  Sex: Male

DRUGS (5)
  1. EMEND [Suspect]
     Indication: PROPHYLAXIS OF NAUSEA AND VOMITING
     Dosage: 125 MG, ONCE
     Route: 048
  2. EMEND [Suspect]
     Dosage: 80 MG, ONCE
     Route: 048
  3. EMEND [Suspect]
     Dosage: 3 DF, ONCE, (TAKING ALL THREE CAPSULES AT ONE TIME BY MISTAKE
     Route: 048
     Dates: start: 20140220, end: 20140220
  4. CARBOPLATIN [Concomitant]
  5. ABRAXANE [Concomitant]

REACTIONS (3)
  - Oxygen saturation decreased [Unknown]
  - Overdose [Unknown]
  - Wrong technique in drug usage process [Unknown]
